FAERS Safety Report 9408640 (Version 2)
Quarter: 2013Q3

REPORT INFORMATION
  Report Type: Spontaneous
  Country: US (occurrence: US)
  Receive Date: 20130718
  Receipt Date: 20130903
  Transmission Date: 20140515
  Serious: Yes (Other)
  Sender: FDA-Public Use
  Company Number: US-ALLERGAN-1310355US

PATIENT
  Age: 56 Year
  Sex: Female

DRUGS (4)
  1. REFRESH OPTIVE SENSITIVE [Suspect]
     Indication: DRY EYE
     Dosage: 2 GTT, QD
     Route: 047
     Dates: start: 20130706, end: 20130710
  2. SALINE FLUSH [Concomitant]
     Indication: SINUS DISORDER
  3. NASONEX [Concomitant]
     Indication: SINUS DISORDER
  4. INHALER NOS [Concomitant]
     Indication: ASTHMA
     Dosage: UNK

REACTIONS (10)
  - Dyspnoea [Recovering/Resolving]
  - Muscle tightness [Recovering/Resolving]
  - Chest discomfort [Recovering/Resolving]
  - Nervousness [Unknown]
  - Feeling jittery [Unknown]
  - Sensory disturbance [Unknown]
  - Dysgeusia [Unknown]
  - Dry mouth [Unknown]
  - Cough [Unknown]
  - Expired drug administered [Unknown]
